FAERS Safety Report 15950791 (Version 3)
Quarter: 2019Q1

REPORT INFORMATION
  Report Type: Spontaneous
  Country: US (occurrence: US)
  Receive Date: 20190212
  Receipt Date: 20190329
  Transmission Date: 20190417
  Serious: Yes (Other)
  Sender: FDA-Public Use
  Company Number: US-PFIZER INC-2015439043

PATIENT
  Age: 62 Year
  Sex: Female
  Weight: 47 kg

DRUGS (11)
  1. LYRICA [Suspect]
     Active Substance: PREGABALIN
     Indication: MYALGIA
  2. FLEXERIL [CEFIXIME] [Concomitant]
     Active Substance: CEFIXIME
     Indication: FIBROMYALGIA
     Dosage: 10 MG, AS NEEDED (CAN TAKE UP TO 3 TABLETS A DAY AS NEEDED)
  3. LYRICA [Suspect]
     Active Substance: PREGABALIN
     Indication: FIBROMYALGIA
     Dosage: 75 MG, 2X/DAY (75MG IN THE MORNING AND 75MG IN THE EVENING)
  4. LYRICA [Suspect]
     Active Substance: PREGABALIN
     Indication: OSTEOARTHRITIS
     Dosage: 150 MG, 2X/DAY [2 CAPSULES EVERY MORNING AND 2 CAPSULES AT BEDTIME]
     Route: 048
  5. LYRICA [Suspect]
     Active Substance: PREGABALIN
     Indication: MYOSITIS
  6. LASIX [Concomitant]
     Active Substance: FUROSEMIDE
     Indication: FLUID RETENTION
     Dosage: 20 MG, AS NEEDED (1 TABLET BY MOUTH AS NEEDED)
     Route: 048
  7. PREMARIN [Concomitant]
     Active Substance: ESTROGENS, CONJUGATED
     Indication: HORMONE THERAPY
     Dosage: 0.625 MG, ALTERNATE DAY
     Route: 048
  8. LYRICA [Suspect]
     Active Substance: PREGABALIN
     Indication: MUSCULAR WEAKNESS
     Dosage: 225 MG, DAILY (150MG ATNIGHT AND 75MG IN THE MORNING )
  9. KLONOPIN [Concomitant]
     Active Substance: CLONAZEPAM
     Indication: TREMOR
     Dosage: 1 MG, 2X/DAY
     Route: 048
     Dates: start: 2000
  10. TOPAMAX [Concomitant]
     Active Substance: TOPIRAMATE
     Indication: MIGRAINE
     Dosage: 200 MG, 1X/DAY
     Route: 048
  11. BABY ASPIRIN [Concomitant]
     Active Substance: ASPIRIN
     Indication: ANTICOAGULANT THERAPY
     Dosage: 81 MG, DAILY
     Route: 048
     Dates: start: 2014

REACTIONS (9)
  - Migraine [Unknown]
  - Transient ischaemic attack [Unknown]
  - Burning sensation [Unknown]
  - Drug effect incomplete [Unknown]
  - Loss of personal independence in daily activities [Unknown]
  - Weight decreased [Unknown]
  - Confusional state [Unknown]
  - Renal failure [Not Recovered/Not Resolved]
  - Feeling abnormal [Unknown]

NARRATIVE: CASE EVENT DATE: 2019
